FAERS Safety Report 8935878 (Version 1)
Quarter: 2012Q4

REPORT INFORMATION
  Report Type: 
  Country: US (occurrence: US)
  Receive Date: 20121130
  Receipt Date: 20121130
  Transmission Date: 20130627
  Serious: No
  Sender: FDA-Public Use
  Company Number: US-ABBOTT-12P-163-0996136-00

PATIENT
  Age: 59 None
  Sex: Male
  Weight: 94.89 kg

DRUGS (11)
  1. ANDROGEL [Suspect]
     Indication: BLOOD TESTOSTERONE DECREASED
     Dates: start: 201208, end: 201209
  2. ANDROGEL [Suspect]
     Dates: start: 201209, end: 201210
  3. ANDROGEL [Suspect]
     Dates: start: 201210, end: 20121012
  4. GLUCOPHAGE [Concomitant]
     Indication: DIABETES MELLITUS
  5. LIPIDRA [Concomitant]
     Indication: DIABETES MELLITUS
     Dosage: Sliding scale. one unit for every 4 grams carbohydrate
     Dates: start: 201209
  6. LIPIDRA [Concomitant]
     Dosage: One unit for every 6 g of carbohydrate
     Dates: end: 201209
  7. LANTUS [Concomitant]
     Indication: DIABETES MELLITUS
     Dosage: 30 units in evening and 15 units in morning
     Dates: start: 201209
  8. LANTUS [Concomitant]
     Dosage: 28 units in evening and 14 units in morning
     Dates: end: 201209
  9. METFORMIN [Concomitant]
     Indication: DIABETES MELLITUS
  10. LIPITOR [Concomitant]
     Indication: BLOOD CHOLESTEROL INCREASED
  11. VALSARTAN [Concomitant]
     Indication: HYPERTENSION

REACTIONS (4)
  - Blood glucose increased [Recovered/Resolved]
  - Hot flush [Recovered/Resolved]
  - Hyperhidrosis [Recovered/Resolved]
  - Blood testosterone decreased [Unknown]
